FAERS Safety Report 8971703 (Version 1)
Quarter: 2012Q4

REPORT INFORMATION
  Report Type: 
  Country: GB (occurrence: GB)
  Receive Date: 20121217
  Receipt Date: 20121217
  Transmission Date: 20130627
  Serious: Yes (Hospitalization)
  Sender: FDA-Public Use
  Company Number: GB-TEVA-374814ISR

PATIENT
  Age: 89 Year
  Sex: Male
  Weight: 46.2 kg

DRUGS (10)
  1. METHOTREXATE [Suspect]
     Indication: SERONEGATIVE ARTHRITIS
     Route: 048
     Dates: end: 20110317
  2. ISOSORBIDE MONONITRATE [Concomitant]
  3. TRAMADOL HYDROCHLORIDE [Concomitant]
  4. RABEPRAZOLE [Concomitant]
  5. FOLIC ACID [Concomitant]
  6. FERROUS FUMARATE [Concomitant]
  7. ASASANTIN RETARD [Concomitant]
  8. ADCAL-D3 [Concomitant]
  9. MOVICOL [Concomitant]
  10. COSOPT [Concomitant]

REACTIONS (11)
  - Neutropenic sepsis [Recovered/Resolved]
  - Pancytopenia [Recovered/Resolved]
  - Fall [Recovered/Resolved]
  - Malaise [Recovered/Resolved]
  - Eating disorder [Recovered/Resolved]
  - Weight decreased [Recovered/Resolved]
  - Constipation [Recovered/Resolved]
  - Diarrhoea [Recovered/Resolved]
  - Fluid intake reduced [Recovered/Resolved]
  - Syncope [Recovered/Resolved]
  - Renal failure acute [Recovered/Resolved]
